FAERS Safety Report 19422141 (Version 1)
Quarter: 2021Q2

REPORT INFORMATION
  Report Type: Spontaneous
  Country: IN (occurrence: IN)
  Receive Date: 20210616
  Receipt Date: 20210616
  Transmission Date: 20210717
  Serious: No
  Sender: FDA-Public Use
  Company Number: IN-LUPIN LIMITED-2021-01742

PATIENT
  Sex: Male

DRUGS (2)
  1. SALBAIR [SALBUTAMOL SULFATE] [Suspect]
     Active Substance: ALBUTEROL SULFATE
     Indication: PRODUCT USED FOR UNKNOWN INDICATION
     Dosage: UNK UNK, QD, SALBAIR TRANSCAPS, CAPSULE
     Route: 065
  2. SALBAIR [SALBUTAMOL SULFATE] [Suspect]
     Active Substance: ALBUTEROL SULFATE
     Dosage: UNK UNK, BID, SALBAIR TRANSCAPS, CAPSULE
     Route: 065

REACTIONS (1)
  - Drug ineffective [Unknown]
